FAERS Safety Report 7346050-7 (Version None)
Quarter: 2011Q1

REPORT INFORMATION
  Report Type: 
  Country: None (occurrence: None)
  Receive Date: 20110311
  Receipt Date: 20110302
  Transmission Date: 20110831
  Serious: No
  Sender: FDA-Public Use
  Company Number: US-BIOGENIDEC-2011BI008361

PATIENT
  Age: 36 Year
  Sex: Female

DRUGS (1)
  1. AVONEX [Suspect]
     Indication: MULTIPLE SCLEROSIS
     Route: 030
     Dates: start: 20100118

REACTIONS (7)
  - SCRATCH [None]
  - GRIP STRENGTH DECREASED [None]
  - PARAESTHESIA [None]
  - FATIGUE [None]
  - VITAMIN D DEFICIENCY [None]
  - HYPOAESTHESIA [None]
  - MUSCULAR WEAKNESS [None]
